FAERS Safety Report 5188005-7 (Version None)
Quarter: 2006Q4

REPORT INFORMATION
  Report Type: 
  Country: None (occurrence: None)
  Receive Date: 20061214
  Receipt Date: 20061128
  Transmission Date: 20070319
  Serious: Yes (Other)
  Sender: FDA-Public Use
  Company Number: CA-2006-027813

PATIENT
  Age: 65 Year
  Sex: Female
  Weight: 75 kg

DRUGS (3)
  1. BETASERON [Suspect]
     Indication: SECONDARY PROGRESSIVE MULTIPLE SCLEROSIS
     Dosage: 8 MIU, EVERY 2D, SUBCUTANEOUS
     Route: 058
     Dates: start: 19990211, end: 20060914
  2. EXTRA STRENGTH TYLENOL [Suspect]
     Indication: INFLUENZA LIKE ILLNESS
     Dosage: 1 TAB(S), ORAL
     Route: 048
  3. ARIMIDEX [Concomitant]

REACTIONS (7)
  - ASCITES [None]
  - BREAST CANCER METASTATIC [None]
  - DRUG INEFFECTIVE [None]
  - HEPATIC CIRRHOSIS [None]
  - INFLUENZA LIKE ILLNESS [None]
  - METASTASES TO PERITONEUM [None]
  - OEDEMA PERIPHERAL [None]
